FAERS Safety Report 9903005 (Version 1)
Quarter: 2014Q1

REPORT INFORMATION
  Report Type: Spontaneous
  Country: TR (occurrence: TR)
  Receive Date: 20140217
  Receipt Date: 20140217
  Transmission Date: 20141002
  Serious: Yes (Other)
  Sender: FDA-Public Use
  Company Number: PHHY2014TR018168

PATIENT
  Age: 63 Year
  Sex: Female

DRUGS (7)
  1. ACLASTA [Suspect]
     Dosage: UNK UKN, UNK
     Route: 042
  2. LEFLUNOMIDE [Concomitant]
     Dosage: UNK UKN, UNK
  3. METHYLPREDNISOLONE [Concomitant]
     Dosage: UNK
  4. HYDROXYCHLOROQUINE [Concomitant]
     Dosage: UNK
  5. CALCIUM [Concomitant]
     Dosage: UNK
  6. VERMIDON [Concomitant]
     Dosage: UNK
  7. BRUFEN ^BOOTS^ [Concomitant]
     Dosage: UNK UKN, UNK

REACTIONS (5)
  - Balance disorder [Not Recovered/Not Resolved]
  - Vomiting [Not Recovered/Not Resolved]
  - Nausea [Not Recovered/Not Resolved]
  - Pyrexia [Not Recovered/Not Resolved]
  - Dizziness [Unknown]
